FAERS Safety Report 7571417-1 (Version None)
Quarter: 2011Q2

REPORT INFORMATION
  Report Type: 
  Country: None (occurrence: None)
  Receive Date: 20110624
  Receipt Date: 20110615
  Transmission Date: 20111010
  Serious: Yes (Hospitalization)
  Sender: FDA-Public Use
  Company Number: PHHY2011KR53038

PATIENT
  Age: 21 Year
  Sex: Male

DRUGS (3)
  1. MESALAMINE [Suspect]
     Indication: COLITIS ULCERATIVE
     Dosage: UNK
  2. PREDNISOLONE [Suspect]
     Dosage: UNK
  3. INTERFERON BETA-1B [Suspect]
     Indication: MULTIPLE SCLEROSIS
     Dosage: UNK

REACTIONS (6)
  - PYREXIA [None]
  - VENA CAVA THROMBOSIS [None]
  - PANCREATIC ENLARGEMENT [None]
  - PANCREATITIS ACUTE [None]
  - NAUSEA [None]
  - ABDOMINAL PAIN UPPER [None]
